FAERS Safety Report 23334734 (Version 1)
Quarter: 2023Q4

REPORT INFORMATION
  Report Type: Report from Study
  Country: KR (occurrence: KR)
  Receive Date: 20231224
  Receipt Date: 20231224
  Transmission Date: 20240110
  Serious: Yes (Hospitalization)
  Sender: FDA-Public Use
  Company Number: KR-JNJFOC-20231238433

PATIENT
  Age: 75 Year
  Sex: Male
  Weight: 55.6 kg

DRUGS (63)
  1. APALUTAMIDE [Suspect]
     Active Substance: APALUTAMIDE
     Indication: Hormone-dependent prostate cancer
     Dosage: DATE OF LAST DOSE ADMINISTRATION: 08/NOV/2023
     Route: 048
     Dates: start: 20230817
  2. METHYLPREDNISOLONE ACEPONATE [Concomitant]
     Active Substance: METHYLPREDNISOLONE ACEPONATE
     Indication: Pneumocystis jirovecii pneumonia
     Dates: start: 20230817
  3. FEXOFENADINE HYDROCHLORIDE [Concomitant]
     Active Substance: FEXOFENADINE HYDROCHLORIDE
     Indication: Rash
     Route: 065
     Dates: start: 20230817
  4. XGEVA [Concomitant]
     Active Substance: DENOSUMAB
     Indication: Hormone-dependent prostate cancer
     Route: 058
     Dates: start: 20230817
  5. OXYCODONE [Concomitant]
     Active Substance: OXYCODONE
     Indication: Hormone-dependent prostate cancer
     Route: 048
     Dates: start: 20230821, end: 20230827
  6. CALCIUM CARBONATE [Concomitant]
     Active Substance: CALCIUM CARBONATE
     Indication: Hormone-dependent prostate cancer
     Route: 048
     Dates: start: 20230914
  7. ASIDOL [Concomitant]
     Indication: Hormone-dependent prostate cancer
     Route: 048
     Dates: start: 20230914, end: 20231203
  8. PROFA [Concomitant]
     Indication: Drug reaction with eosinophilia and systemic symptoms
     Dosage: 1/100 G/ML
     Route: 042
     Dates: start: 20231130, end: 20231130
  9. PLASMA SOLUTION A [Concomitant]
     Indication: Fluid replacement
     Route: 042
     Dates: start: 20231130, end: 20231130
  10. HUMULIN R [Concomitant]
     Active Substance: INSULIN HUMAN
     Indication: Hyperglycaemia
     Dosage: 1 UNIT/0.01 ML - 50 UNIT
     Route: 042
     Dates: start: 20231212
  11. SODIUM CHLORIDE [Concomitant]
     Active Substance: SODIUM CHLORIDE
     Indication: Product used for unknown indication
  12. ALBUMIN HUMAN [Concomitant]
     Active Substance: ALBUMIN HUMAN
     Indication: Hypoalbuminaemia
     Dosage: 20%
     Route: 042
     Dates: start: 20231130, end: 20231205
  13. ALBUMIN HUMAN [Concomitant]
     Active Substance: ALBUMIN HUMAN
     Dosage: 5%
     Route: 042
     Dates: start: 20231205, end: 20231206
  14. ALBUMIN HUMAN [Concomitant]
     Active Substance: ALBUMIN HUMAN
     Dosage: 20%
     Route: 042
     Dates: start: 20231207, end: 20231213
  15. LIDOCAINE [Concomitant]
     Active Substance: LIDOCAINE
     Indication: Biopsy skin
     Dosage: 1%
     Dates: start: 20231130, end: 20231130
  16. BEAROBAN [Concomitant]
     Indication: Prophylaxis
     Route: 062
     Dates: start: 20231130, end: 20231130
  17. DEXAMETHASONE [Concomitant]
     Active Substance: DEXAMETHASONE
     Indication: Drug reaction with eosinophilia and systemic symptoms
     Route: 030
     Dates: start: 20231130, end: 20231201
  18. PENIRAMIN [Concomitant]
     Indication: Drug reaction with eosinophilia and systemic symptoms
     Route: 030
     Dates: start: 20231130, end: 20231201
  19. PENIRAMIN [Concomitant]
     Route: 042
     Dates: start: 20231202, end: 20231202
  20. BEPOTASTINE [Concomitant]
     Active Substance: BEPOTASTINE
     Indication: Drug reaction with eosinophilia and systemic symptoms
     Route: 048
     Dates: start: 20231201, end: 20231207
  21. LERIZINE [Concomitant]
     Indication: Drug reaction with eosinophilia and systemic symptoms
     Route: 048
     Dates: start: 20231201, end: 20231204
  22. URSODIOL [Concomitant]
     Active Substance: URSODIOL
     Indication: Drug reaction with eosinophilia and systemic symptoms
     Route: 048
     Dates: start: 20231201, end: 20231201
  23. URSODIOL [Concomitant]
     Active Substance: URSODIOL
     Route: 048
     Dates: start: 20231202, end: 20231202
  24. URSODIOL [Concomitant]
     Active Substance: URSODIOL
     Route: 048
     Dates: start: 20231202
  25. ADENINE HYDROCHLORIDE;CARNITINE OROTATE;CYANOCOBALAMIN;LIVER;PYRIDOXIN [Concomitant]
     Indication: Drug reaction with eosinophilia and systemic symptoms
     Dosage: 3 CAPSULES
     Dates: start: 20231201
  26. ORNITHINE ASPARTATE [Concomitant]
     Active Substance: ORNITHINE ASPARTATE
     Indication: Drug reaction with eosinophilia and systemic symptoms
     Route: 042
     Dates: start: 20231202, end: 20231206
  27. ORNITHINE ASPARTATE [Concomitant]
     Active Substance: ORNITHINE ASPARTATE
     Route: 042
     Dates: start: 20231207, end: 20231211
  28. METHYLPREDNISOLONE SODIUM SUCCINATE [Concomitant]
     Active Substance: METHYLPREDNISOLONE SODIUM SUCCINATE
     Indication: Drug reaction with eosinophilia and systemic symptoms
     Route: 042
     Dates: start: 20231201, end: 20231204
  29. METHYLPREDNISOLONE SODIUM SUCCINATE [Concomitant]
     Active Substance: METHYLPREDNISOLONE SODIUM SUCCINATE
     Route: 042
     Dates: start: 20231205, end: 20231206
  30. METHYLPREDNISOLONE SODIUM SUCCINATE [Concomitant]
     Active Substance: METHYLPREDNISOLONE SODIUM SUCCINATE
     Route: 042
     Dates: start: 20231206, end: 20231207
  31. METHYLPREDNISOLONE SODIUM SUCCINATE [Concomitant]
     Active Substance: METHYLPREDNISOLONE SODIUM SUCCINATE
     Route: 042
     Dates: start: 20231212, end: 20231214
  32. SULFAMETHOXAZOLE\TRIMETHOPRIM [Concomitant]
     Active Substance: SULFAMETHOXAZOLE\TRIMETHOPRIM
     Indication: Pneumocystis jirovecii pneumonia
     Dosage: 10 TAB
     Route: 048
     Dates: start: 20231205, end: 20231206
  33. SULFAMETHOXAZOLE\TRIMETHOPRIM [Concomitant]
     Active Substance: SULFAMETHOXAZOLE\TRIMETHOPRIM
     Dosage: 20 TAB
     Route: 048
     Dates: start: 20231207, end: 20231207
  34. SULFAMETHOXAZOLE\TRIMETHOPRIM [Concomitant]
     Active Substance: SULFAMETHOXAZOLE\TRIMETHOPRIM
     Dosage: 15 TAB
     Route: 048
     Dates: start: 20231208
  35. ZITHROMAX [Concomitant]
     Active Substance: AZITHROMYCIN DIHYDRATE
     Indication: Pneumocystis jirovecii pneumonia
     Route: 048
     Dates: start: 20231205, end: 20231206
  36. LEVOFLOXACIN [Concomitant]
     Active Substance: LEVOFLOXACIN
     Indication: Pneumocystis jirovecii pneumonia
     Route: 042
     Dates: start: 20231206, end: 20231211
  37. GAVIR [Concomitant]
     Indication: Pneumocystis jirovecii pneumonia
     Route: 042
     Dates: start: 20231206
  38. ONEFLU [Concomitant]
     Indication: Pneumocystis jirovecii pneumonia
     Route: 042
     Dates: start: 20231206, end: 20231212
  39. TEICONIN [Concomitant]
     Indication: Pneumocystis jirovecii pneumonia
     Route: 042
     Dates: start: 20231213
  40. TAPSIN [Concomitant]
     Indication: Pneumocystis jirovecii pneumonia
     Route: 042
     Dates: start: 20231214
  41. METHYSOL [Concomitant]
     Indication: Drug reaction with eosinophilia and systemic symptoms
     Route: 042
     Dates: start: 20231207, end: 20231211
  42. MIDAZOLAM [Concomitant]
     Active Substance: MIDAZOLAM
     Indication: Sedative therapy
     Route: 042
     Dates: start: 20231208
  43. PROPOFOL [Concomitant]
     Active Substance: PROPOFOL
     Indication: Sedative therapy
     Dosage: 2%
     Route: 042
     Dates: start: 20231206
  44. ULTIAN [Concomitant]
     Indication: Sedative therapy
     Route: 042
     Dates: start: 20231206
  45. NOREPINEPHRINE [Concomitant]
     Active Substance: NOREPINEPHRINE
     Indication: Sedative therapy
     Dates: start: 20231206
  46. ETOMIDATE [Concomitant]
     Active Substance: ETOMIDATE
     Indication: Endotracheal intubation
     Route: 042
     Dates: start: 20231206, end: 20231206
  47. ROCUMERON [Concomitant]
     Indication: Endotracheal intubation
     Route: 042
     Dates: start: 20231206, end: 20231206
  48. VECURONIUM [Concomitant]
     Active Substance: VECURONIUM BROMIDE
     Indication: Mechanical ventilation
     Route: 042
     Dates: start: 20231209
  49. ENOXAPARIN SODIUM [Concomitant]
     Active Substance: ENOXAPARIN SODIUM
     Indication: Thrombosis prophylaxis
     Route: 058
     Dates: start: 20231206
  50. ALANINE;ARGININE;CALCIUM HYDROXIDE;GLUCOSE MONOHYDRATE;GLYCINE;GLYCINE [Concomitant]
     Indication: Thrombosis prophylaxis
     Route: 042
     Dates: start: 20231206
  51. FURTMAN [Concomitant]
     Indication: Nutritional supplementation
     Route: 042
     Dates: start: 20231206
  52. VITAMINS [Concomitant]
     Active Substance: VITAMINS
     Indication: Nutritional supplementation
     Route: 042
     Dates: start: 20231206
  53. FREAMINE [ALANINE;ARGININE;CYSTEINE HYDROCHLORIDE;GLYCINE;HISTIDINE;IS [Concomitant]
     Indication: Nutritional supplementation
     Dosage: 8.5 %
     Route: 042
     Dates: start: 20231206
  54. AMINO ACIDS\DEXTROSE\ELECTROLYTES NOS\SOYBEAN OIL [Concomitant]
     Active Substance: AMINO ACIDS\DEXTROSE\ELECTROLYTES NOS\SOYBEAN OIL
     Indication: Nutritional supplementation
     Route: 042
     Dates: start: 20231207, end: 20231210
  55. DULACKHAN [Concomitant]
     Indication: Prophylaxis
     Route: 048
     Dates: start: 20231202
  56. CALCIUM POLYCARBOPHIL [Concomitant]
     Active Substance: CALCIUM POLYCARBOPHIL
     Indication: Prophylaxis
     Route: 048
     Dates: start: 20231204
  57. AGIO [Concomitant]
     Indication: Constipation
     Route: 048
     Dates: start: 20231204, end: 20231205
  58. ALFACALCIDOL [Concomitant]
     Active Substance: ALFACALCIDOL
     Indication: Hormone-dependent prostate cancer
     Route: 048
     Dates: start: 20231204
  59. CALCIUM POLYSTYRENE SULFONATE [Concomitant]
     Active Substance: CALCIUM POLYSTYRENE SULFONATE
     Indication: Hyperglycaemia
     Route: 048
     Dates: start: 20231212
  60. KASKA [Concomitant]
     Indication: Hyperglycaemia
     Route: 048
     Dates: start: 20231213
  61. POTASSIUM CHLORIDE [Concomitant]
     Active Substance: POTASSIUM CHLORIDE
     Indication: Hyperglycaemia
     Route: 048
     Dates: start: 20231206, end: 20231207
  62. PHOSTEN [Concomitant]
     Indication: Hyperglycaemia
     Route: 042
     Dates: start: 20231207, end: 20231208
  63. ACETYLCYSTEINE [Concomitant]
     Active Substance: ACETYLCYSTEINE
     Indication: Pneumocystis jirovecii pneumonia
     Dosage: 10% NEBULIZER
     Route: 065
     Dates: start: 20231205, end: 20231206

REACTIONS (1)
  - Proctitis [Not Recovered/Not Resolved]

NARRATIVE: CASE EVENT DATE: 20231122
